FAERS Safety Report 20197510 (Version 1)
Quarter: 2021Q4

REPORT INFORMATION
  Report Type: Spontaneous
  Country: US (occurrence: US)
  Receive Date: 20211217
  Receipt Date: 20211217
  Transmission Date: 20220303
  Serious: No
  Sender: FDA-Public Use
  Company Number: US-PACIRA-2021000278

PATIENT
  Sex: Female
  Weight: 54 kg

DRUGS (7)
  1. EXPAREL [Suspect]
     Active Substance: BUPIVACAINE
     Dosage: 5 ML EXPAREL WITH 5 ML NS
     Route: 065
     Dates: start: 20210416, end: 20210416
  2. SODIUM CHLORIDE [Concomitant]
     Active Substance: SODIUM CHLORIDE
     Dosage: 5 ML NS WITH 5 ML EXPAREL
     Dates: start: 20210416, end: 20210416
  3. Lidocaine with Epi (1:100,000) [Concomitant]
     Dosage: 6.8 ML
     Route: 065
     Dates: start: 20210416, end: 20210416
  4. Bupivacaine with Epi 1:200,000 [Concomitant]
     Dosage: 3.6 ML
     Route: 065
     Dates: start: 20210416, end: 20210416
  5. AMOXICILLIN [Concomitant]
     Active Substance: AMOXICILLIN
     Dosage: NOT PROVIDED, PRESCRIBED AT DISCHARGE
  6. HYDROCODONE [Concomitant]
     Active Substance: HYDROCODONE
     Dosage: NOT PROVIDED, PRESCRIBED AT DISCHARGE
  7. IBUPROFEN [Concomitant]
     Active Substance: IBUPROFEN
     Dosage: NOT PROVIDED, PRESCRIBED AT DISCHARGE

REACTIONS (1)
  - Dizziness [Not Recovered/Not Resolved]

NARRATIVE: CASE EVENT DATE: 20210417
